FAERS Safety Report 7922648 (Version 6)
Quarter: 2013Q1

REPORT INFORMATION
  Report Type: Spontaneous
  Country: US (occurrence: US)
  Receive Date: 20110429
  Receipt Date: 20130329
  Transmission Date: 20140127
  Serious: Yes (Other)
  Sender: FDA-Public Use
  Company Number: US-ASTRAZENECA-2009UW16768

PATIENT
  Age: 46 Year
  Sex: Female

DRUGS (7)
  1. NEXIUM [Suspect]
     Indication: GASTROOESOPHAGEAL REFLUX DISEASE
     Route: 048
     Dates: start: 200906
  2. PRILOSEC [Suspect]
     Route: 048
  3. ZANTAC [Concomitant]
  4. PREVACID [Concomitant]
  5. TUMS [Concomitant]
  6. PROTONIX [Concomitant]
  7. RANITIDINE [Concomitant]

REACTIONS (16)
  - Blister [Unknown]
  - Nasal congestion [Unknown]
  - Influenza [Unknown]
  - Abdominal distension [Unknown]
  - Gastrooesophageal reflux disease [Unknown]
  - Panic attack [Unknown]
  - Dyspepsia [Unknown]
  - Pain [Unknown]
  - Gait disturbance [Unknown]
  - Flatulence [Unknown]
  - Vomiting [Unknown]
  - Malaise [Unknown]
  - Abdominal discomfort [Unknown]
  - Malaise [Unknown]
  - Drug ineffective [Unknown]
  - Intentional drug misuse [Unknown]
